FAERS Safety Report 13982376 (Version 1)
Quarter: 2017Q3

REPORT INFORMATION
  Report Type: Spontaneous
  Country: GB (occurrence: GB)
  Receive Date: 20170918
  Receipt Date: 20170918
  Transmission Date: 20171128
  Serious: Yes (Other)
  Sender: FDA-Public Use
  Company Number: GB-SA-2017SA155172

PATIENT
  Sex: Male

DRUGS (1)
  1. FABRAZYME [Suspect]
     Active Substance: AGALSIDASE BETA
     Route: 041

REACTIONS (6)
  - Urinary hesitation [Unknown]
  - Vertigo [Unknown]
  - Haematuria [Unknown]
  - Haemorrhage [Unknown]
  - Nausea [Unknown]
  - Anal incontinence [Unknown]

NARRATIVE: CASE EVENT DATE: 2017
